FAERS Safety Report 5623297-9 (Version None)
Quarter: 2008Q1

REPORT INFORMATION
  Report Type: 
  Country: None (occurrence: None)
  Receive Date: 20080207
  Receipt Date: 20080123
  Transmission Date: 20080703
  Serious: Yes (Other)
  Sender: FDA-Public Use
  Company Number: 08-000132

PATIENT
  Age: 36 Year
  Sex: Female
  Weight: 88.9 kg

DRUGS (4)
  1. LOESTRIN 24 FE [Suspect]
     Indication: OLIGOMENORRHOEA
     Dosage: 20/1000UG,QD; ORAL
     Route: 048
     Dates: start: 20070601
  2. LOESTRIN 24 FE [Suspect]
     Indication: POLYMENORRHOEA
     Dosage: 20/1000UG,QD; ORAL
     Route: 048
     Dates: start: 20070601
  3. ADVIL /00109201/ (IBUPROFEN) [Concomitant]
  4. SUDAFED /00076302/ (PSEUDOEPHEDRINE HYDROCHLORIDE) [Concomitant]

REACTIONS (3)
  - METRORRHAGIA [None]
  - OVARIAN CYST [None]
  - URINE KETONE BODY PRESENT [None]
